FAERS Safety Report 6758906-4 (Version None)
Quarter: 2010Q2

REPORT INFORMATION
  Report Type: 
  Country: None (occurrence: None)
  Receive Date: 20100607
  Receipt Date: 20100601
  Transmission Date: 20101027
  Serious: Yes (Death, Other)
  Sender: FDA-Public Use
  Company Number: PHHY2010US35874

PATIENT
  Age: 10 Year
  Sex: Female

DRUGS (9)
  1. CYCLOSPORINE [Suspect]
     Indication: STEM CELL TRANSPLANT
  2. CYCLOSPORINE [Suspect]
     Indication: PROPHYLAXIS AGAINST GRAFT VERSUS HOST DISEASE
  3. RITUXIMAB [Suspect]
     Indication: STEM CELL TRANSPLANT
  4. RITUXIMAB [Suspect]
     Indication: PROPHYLAXIS AGAINST GRAFT VERSUS HOST DISEASE
  5. METHYLPREDNISOLONE [Suspect]
     Indication: STEM CELL TRANSPLANT
  6. METHYLPREDNISOLONE [Suspect]
     Indication: PROPHYLAXIS AGAINST GRAFT VERSUS HOST DISEASE
  7. CYCLOPHOSPHAMIDE [Suspect]
     Indication: STEM CELL TRANSPLANT
     Dosage: 60 MG/ KG PER DAY FOR TWO DAYS
  8. THIOTEPA [Suspect]
     Indication: STEM CELL TRANSPLANT
     Dosage: 5 MG/KG, BID
  9. RADIATION THERAPY [Concomitant]
     Indication: STEM CELL TRANSPLANT

REACTIONS (4)
  - ACUTE LYMPHOCYTIC LEUKAEMIA RECURRENT [None]
  - CYTOMEGALOVIRUS INFECTION [None]
  - MUCOSAL INFLAMMATION [None]
  - MYCOBACTERIAL INFECTION [None]
